FAERS Safety Report 8164035-8 (Version None)
Quarter: 2012Q1

REPORT INFORMATION
  Report Type: 
  Country: None (occurrence: None)
  Receive Date: 20120224
  Receipt Date: 20120216
  Transmission Date: 20120608
  Serious: Yes (Other)
  Sender: FDA-Public Use
  Company Number: PHHY2012BR014623

PATIENT
  Age: 36 Year
  Sex: Female

DRUGS (2)
  1. DELERA [Concomitant]
  2. PARLODEL [Suspect]
     Indication: HYPERPROLACTINAEMIA
     Dosage: 1 DF, UNK

REACTIONS (10)
  - WEIGHT INCREASED [None]
  - NAUSEA [None]
  - MALAISE [None]
  - MENSTRUAL DISORDER [None]
  - DRUG INEFFECTIVE [None]
  - DYSPNOEA [None]
  - IRRITABILITY [None]
  - DIZZINESS [None]
  - GENERALISED OEDEMA [None]
  - DECREASED ACTIVITY [None]
